FAERS Safety Report 9168731 (Version 1)
Quarter: 2013Q1

REPORT INFORMATION
  Report Type: Spontaneous
  Country: CN (occurrence: None)
  Receive Date: 20130308
  Receipt Date: 20130308
  Transmission Date: 20140127
  Serious: Yes (Other)
  Sender: FDA-Public Use
  Company Number: SYM-2013-01387

PATIENT
  Age: 70 Year
  Sex: Male

DRUGS (3)
  1. FLUOROURACIL (FLUOROURACIL) (FLUOROURACIL) [Suspect]
     Indication: RECTAL CANCER
     Route: 040
     Dates: start: 201003, end: 201004
  2. LEUCOVORIN (FOLINIC ACID) (FOLINIC ACID) [Suspect]
     Indication: RECTAL CANCER
     Dates: start: 201003, end: 201004
  3. THERAPEUTIC RADIOPHARMACEUTICALS (THERAPEUTIC RADIOPHARMACEUTICALS) [Suspect]
     Indication: RECTAL CANCER
     Dates: start: 201003, end: 201003

REACTIONS (1)
  - Pseudomembranous colitis [None]
